FAERS Safety Report 18216806 (Version 1)
Quarter: 2020Q3

REPORT INFORMATION
  Report Type: Spontaneous
  Country: ES (occurrence: ES)
  Receive Date: 20200901
  Receipt Date: 20200901
  Transmission Date: 20201103
  Serious: Yes (Life-Threatening, Hospitalization, Other)
  Sender: FDA-Public Use
  Company Number: ES-AMGEN-ESPSP2020138772

PATIENT

DRUGS (3)
  1. CARFILZOMIB [Suspect]
     Active Substance: CARFILZOMIB
     Indication: PLASMA CELL MYELOMA
     Dosage: 20 MILLIGRAM/SQ. METER (DAYS 1 AND 21 OF THE FIRST TREATMENT CYCLE) / ON DAYS 1 AND 2 OF THE FIRST C
     Route: 065
  2. CARFILZOMIB [Suspect]
     Active Substance: CARFILZOMIB
     Dosage: 36 MILLIGRAM/SQ. METER (ON SUBSEQUENT CYCLES )
     Route: 065
  3. CARFILZOMIB [Suspect]
     Active Substance: CARFILZOMIB
     Dosage: 56 MILLIGRAM/SQ. METER, (ON SUBSEQUENT CYCLES)
     Route: 065

REACTIONS (10)
  - Neutropenia [Unknown]
  - Thrombotic microangiopathy [Recovered/Resolved]
  - Off label use [Unknown]
  - Anaemia [Unknown]
  - Interstitial lung disease [Unknown]
  - Cardiac failure [Unknown]
  - Upper respiratory tract infection [Unknown]
  - Thrombocytopenia [Unknown]
  - Renal injury [Unknown]
  - Hypertension [Unknown]
